FAERS Safety Report 13275912 (Version 1)
Quarter: 2017Q1

REPORT INFORMATION
  Report Type: Spontaneous
  Country: US (occurrence: US)
  Receive Date: 20170227
  Receipt Date: 20170227
  Transmission Date: 20170428
  Serious: Yes (Other)
  Sender: FDA-Public Use
  Company Number: None

PATIENT
  Age: 61 Year
  Sex: Male
  Weight: 105.7 kg

DRUGS (11)
  1. LOSARTAN POTASSIUM. [Concomitant]
     Active Substance: LOSARTAN POTASSIUM
  2. LANSOPRAZOLE. [Concomitant]
     Active Substance: LANSOPRAZOLE
  3. HYDROCODONE-APAP [Concomitant]
     Active Substance: ACETAMINOPHEN\HYDROCODONE
  4. PRASCO NDC 66993-934-30 [Suspect]
     Active Substance: TESTOSTERONE
     Indication: BLOOD TESTOSTERONE ABNORMAL
     Dosage: ?          QUANTITY:30 TUBE;?
     Route: 061
     Dates: start: 20170225, end: 20170225
  5. CHLORTHALIDONE. [Concomitant]
     Active Substance: CHLORTHALIDONE
  6. CRESTOR [Concomitant]
     Active Substance: ROSUVASTATIN CALCIUM
  7. NABUMATONE [Concomitant]
     Active Substance: NABUMETONE
  8. POTASSIUM SUPPLEMENT [Concomitant]
     Active Substance: POTASSIUM
  9. CIALIS [Concomitant]
     Active Substance: TADALAFIL
  10. BACLOFEN. [Concomitant]
     Active Substance: BACLOFEN
  11. BUPROPION. [Concomitant]
     Active Substance: BUPROPION

REACTIONS (4)
  - Product substitution issue [None]
  - Malaise [None]
  - Nausea [None]
  - Product odour abnormal [None]

NARRATIVE: CASE EVENT DATE: 20170225
